FAERS Safety Report 23314971 (Version 3)
Quarter: 2024Q1

REPORT INFORMATION
  Report Type: Report from Study
  Country: TH (occurrence: TH)
  Receive Date: 20231219
  Receipt Date: 20240109
  Transmission Date: 20240409
  Serious: No
  Sender: FDA-Public Use
  Company Number: TH-TAKEDA-2023TUS121367

PATIENT
  Age: 14 Year
  Sex: Male
  Weight: 42 kg

DRUGS (5)
  1. ANTIHEMOPHILIC FACTOR, PEGYLATED (MW 20000) HUMAN SEQUENCE RECOMBINANT [Suspect]
     Active Substance: ANTIHEMOPHILIC FACTOR, PEGYLATED (MW 20000) HUMAN SEQUENCE RECOMBINANT
     Indication: Factor VIII deficiency
     Dosage: 11.9 INTERNATIONAL UNIT/KILOGRAM, 2/WEEK
     Route: 042
     Dates: start: 20230503
  2. ANTIHEMOPHILIC FACTOR, PEGYLATED (MW 20000) HUMAN SEQUENCE RECOMBINANT [Suspect]
     Active Substance: ANTIHEMOPHILIC FACTOR, PEGYLATED (MW 20000) HUMAN SEQUENCE RECOMBINANT
     Indication: Factor VIII deficiency
     Dosage: 11.9 INTERNATIONAL UNIT/KILOGRAM, 2/WEEK
     Route: 042
     Dates: start: 20230503
  3. ANTIHEMOPHILIC FACTOR, PEGYLATED (MW 20000) HUMAN SEQUENCE RECOMBINANT [Suspect]
     Active Substance: ANTIHEMOPHILIC FACTOR, PEGYLATED (MW 20000) HUMAN SEQUENCE RECOMBINANT
     Indication: Factor VIII deficiency
     Dosage: 11.9 INTERNATIONAL UNIT/KILOGRAM, 2/WEEK
     Route: 042
     Dates: start: 20230503
  4. OSELTAMIVIR [Concomitant]
     Active Substance: OSELTAMIVIR
     Indication: Influenza
     Dosage: 75 MILLIGRAM, BID
     Route: 048
     Dates: start: 20231214, end: 20231220
  5. TRANEXAMIC ACID [Concomitant]
     Active Substance: TRANEXAMIC ACID
     Indication: Haemarthrosis
     Dosage: 500 MILLIGRAM, TID
     Route: 048
     Dates: start: 20231216, end: 20231221

REACTIONS (3)
  - Influenza [Recovered/Resolved]
  - Vitamin D deficiency [Recovering/Resolving]
  - Hypocalcaemia [Recovering/Resolving]

NARRATIVE: CASE EVENT DATE: 20231214
